FAERS Safety Report 6742399-7 (Version None)
Quarter: 2010Q2

REPORT INFORMATION
  Report Type: 
  Country: None (occurrence: None)
  Receive Date: 20100524
  Receipt Date: 20100507
  Transmission Date: 20101027
  Serious: Yes (Hospitalization)
  Sender: FDA-Public Use
  Company Number: BCN-AS-2010-RR-104

PATIENT
  Age: 26 Year
  Sex: Male

DRUGS (1)
  1. ACETAMINOPHEN [Suspect]
     Dosage: 50 MG, ORAL
     Route: 048

REACTIONS (1)
  - DRUG ERUPTION [None]
